FAERS Safety Report 9305841 (Version 2)
Quarter: 2013Q2

REPORT INFORMATION
  Report Type: Spontaneous
  Country: US (occurrence: US)
  Receive Date: 20130523
  Receipt Date: 20130523
  Transmission Date: 20140414
  Serious: Yes (Other)
  Sender: FDA-Public Use
  Company Number: US-PFIZER INC-2012130218

PATIENT
  Age: 33 Year
  Sex: Female

DRUGS (2)
  1. ETHINYL ESTRADIOL/NORGESTREL [Suspect]
     Indication: CONTRACEPTION
     Dosage: UNK
     Route: 048
  2. ETHINYL ESTRADIOL/NORGESTREL [Suspect]
     Dosage: 0.3- 0.0.3 MG
     Route: 048
     Dates: start: 201009, end: 201109

REACTIONS (3)
  - Product quality issue [Unknown]
  - Drug ineffective [Unknown]
  - Unintended pregnancy [Unknown]
